FAERS Safety Report 6264215-2 (Version None)
Quarter: 2009Q3

REPORT INFORMATION
  Report Type: 
  Country: None (occurrence: None)
  Receive Date: 20090709
  Receipt Date: 20090709
  Transmission Date: 20100115
  Serious: No
  Sender: FDA-Public Use
  Company Number: None

PATIENT
  Sex: Male

DRUGS (2)
  1. METOPROLOL SUCCINATE [Suspect]
     Indication: PROPHYLAXIS
     Dosage: ONE TABLET TWICE A DAY PO
     Route: 048
     Dates: start: 20090625, end: 20090703
  2. METOPROLOL SUCCINATE [Suspect]
     Indication: VENTRICULAR EXTRASYSTOLES
     Dosage: ONE TABLET TWICE A DAY PO
     Route: 048
     Dates: start: 20090625, end: 20090703

REACTIONS (3)
  - CONDITION AGGRAVATED [None]
  - PRODUCT SUBSTITUTION ISSUE [None]
  - VENTRICULAR EXTRASYSTOLES [None]
